FAERS Safety Report 8906596 (Version 1)
Quarter: 2012Q4

REPORT INFORMATION
  Report Type: 
  Country: US (occurrence: US)
  Receive Date: 20121113
  Receipt Date: 20121113
  Transmission Date: 20130627
  Serious: No
  Sender: FDA-Public Use
  Company Number: US-AMGEN-USASP2012011194

PATIENT
  Age: 15 Year
  Sex: Female

DRUGS (2)
  1. ENBREL [Suspect]
     Indication: JUVENILE ARTHRITIS
     Dosage: 50 mg, 2 times/wk
     Dates: start: 20120217
  2. DICLOFENAC [Concomitant]
     Dosage: 2 mg, UNK

REACTIONS (3)
  - Injection site erythema [Unknown]
  - Injection site warmth [Unknown]
  - Injection site pruritus [Unknown]
